FAERS Safety Report 8240974-4 (Version None)
Quarter: 2012Q1

REPORT INFORMATION
  Report Type: 
  Country: None (occurrence: None)
  Receive Date: 20120328
  Receipt Date: 20120316
  Transmission Date: 20120608
  Serious: Yes (Death, Hospitalization)
  Sender: FDA-Public Use
  Company Number: US-CELGENEUS-163-21880-12031386

PATIENT
  Age: 81 Year
  Sex: Male

DRUGS (19)
  1. DECADRON [Concomitant]
     Route: 065
     Dates: start: 20111201
  2. ALBUTEROL [Concomitant]
     Route: 055
  3. PROCHLORPERAZINE [Concomitant]
     Route: 065
  4. FAMOTIDINE [Concomitant]
     Route: 065
  5. LEVOTHYROXINE SODIUM [Concomitant]
     Route: 065
  6. FUROSEMIDE [Concomitant]
     Route: 065
  7. MEGESTROL ACETATE [Concomitant]
     Route: 065
  8. TRAZODONE HCL [Concomitant]
     Route: 065
  9. COMBIVENT [Concomitant]
     Route: 065
  10. TEMAZEPAM [Concomitant]
     Route: 065
  11. REVLIMID [Suspect]
     Indication: MULTIPLE MYELOMA
     Dosage: 25 MILLIGRAM
     Route: 048
     Dates: start: 20111201, end: 20120205
  12. TERAZOSIN HCL [Concomitant]
     Route: 065
  13. MORPHINE [Concomitant]
     Route: 065
  14. MAGNESIUM [Concomitant]
     Route: 065
  15. ASPIRIN [Concomitant]
     Route: 065
  16. FLUTICASONE FUROATE [Concomitant]
     Route: 045
  17. POTASSIUM [Concomitant]
     Route: 065
  18. NORCO [Concomitant]
     Route: 065
  19. FLUID [Concomitant]
     Indication: MENTAL STATUS CHANGES
     Route: 041

REACTIONS (3)
  - MENTAL STATUS CHANGES [None]
  - DEATH [None]
  - FALL [None]
